FAERS Safety Report 10437436 (Version 1)
Quarter: 2014Q3

REPORT INFORMATION
  Report Type: Spontaneous
  Country: US (occurrence: US)
  Receive Date: 20140908
  Receipt Date: 20140908
  Transmission Date: 20150326
  Serious: No
  Sender: FDA-Public Use
  Company Number: US-BRISTOL-MYERS SQUIBB COMPANY-20962015

PATIENT
  Sex: Female
  Weight: 36.28 kg

DRUGS (1)
  1. ABILIFY [Suspect]
     Active Substance: ARIPIPRAZOLE
     Dosage: 1DF= ONE CUT A 10MG AND A 15MG TABLET?FURTHER REDUCED DOSES TO 1/4 TABLETS

REACTIONS (2)
  - Wrong technique in drug usage process [Unknown]
  - Dystonia [Recovered/Resolved]
